FAERS Safety Report 6526232-4 (Version None)
Quarter: 2009Q4

REPORT INFORMATION
  Report Type: 
  Country: None (occurrence: None)
  Receive Date: 20091228
  Receipt Date: 20091207
  Transmission Date: 20100525
  Serious: Yes (Other)
  Sender: FDA-Public Use
  Company Number: 20090573

PATIENT
  Age: 32 Year
  Sex: Female

DRUGS (1)
  1. EPINEPHRINE [Suspect]
     Indication: HYPERSENSITIVITY
     Dosage: 0.3 ML X 3 DOSES 25 MIN APART INTRAMUSCULAR
     Route: 030
     Dates: start: 20091104, end: 20091104

REACTIONS (1)
  - THERAPEUTIC PRODUCT INEFFECTIVE [None]
